FAERS Safety Report 8198053-0 (Version None)
Quarter: 2012Q1

REPORT INFORMATION
  Report Type: 
  Country: None (occurrence: None)
  Receive Date: 20120309
  Receipt Date: 20120112
  Transmission Date: 20120608
  Serious: No
  Sender: FDA-Public Use
  Company Number: US-AMGEN-USASP2012002513

PATIENT
  Age: 51 Year
  Sex: Male

DRUGS (4)
  1. VITAMIN D [Concomitant]
     Dosage: UNK
  2. HYDROXYZINE HCL [Concomitant]
     Dosage: UNK
  3. CALCIUM [Concomitant]
     Dosage: UNK
  4. XGEVA [Suspect]
     Indication: PROSTATE CANCER METASTATIC
     Dosage: 120 MG, Q4WK
     Dates: start: 20110901

REACTIONS (1)
  - PRURITUS [None]
